FAERS Safety Report 5844436-0 (Version None)
Quarter: 2008Q3

REPORT INFORMATION
  Report Type: 
  Country: None (occurrence: None)
  Receive Date: 20080813
  Receipt Date: 20080806
  Transmission Date: 20090109
  Serious: Yes (Hospitalization)
  Sender: FDA-Public Use
  Company Number: US-AMGEN-QUU271408

PATIENT
  Sex: Female
  Weight: 59.9 kg

DRUGS (2)
  1. ENBREL [Suspect]
     Indication: RHEUMATOID ARTHRITIS
     Route: 058
     Dates: start: 20040614
  2. METHOTREXATE [Concomitant]
     Route: 048
     Dates: start: 20060101

REACTIONS (7)
  - CONDITION AGGRAVATED [None]
  - FALL [None]
  - FINGER DEFORMITY [None]
  - HAND DEFORMITY [None]
  - JOINT STIFFNESS [None]
  - OSTEOARTHRITIS [None]
  - RHEUMATOID ARTHRITIS [None]
